FAERS Safety Report 24220970 (Version 1)
Quarter: 2024Q3

REPORT INFORMATION
  Report Type: Spontaneous
  Country: CN (occurrence: CN)
  Receive Date: 20240819
  Receipt Date: 20240819
  Transmission Date: 20241016
  Serious: Yes (Death)
  Sender: AMGEN
  Company Number: CN-AMGEN-CHNSP2024163330

PATIENT
  Age: 28 Year
  Sex: Female

DRUGS (9)
  1. BLINCYTO [Suspect]
     Active Substance: BLINATUMOMAB
     Indication: Acute lymphocytic leukaemia
     Dosage: UNK
     Route: 065
  2. VINCRISTINE [Concomitant]
     Active Substance: VINCRISTINE
  3. IDARUBICIN [Concomitant]
     Active Substance: IDARUBICIN
  4. CYCLOPHOSPHAMIDE [Concomitant]
     Active Substance: CYCLOPHOSPHAMIDE
  5. PEGASPARGASE [Concomitant]
     Active Substance: PEGASPARGASE
  6. PREDNISONE [Concomitant]
     Active Substance: PREDNISONE
  7. DOXORUBICIN [Concomitant]
     Active Substance: DOXORUBICIN
  8. DEXAMETHASONE [Concomitant]
     Active Substance: DEXAMETHASONE
  9. GILTERITINIB [Concomitant]
     Active Substance: GILTERITINIB

REACTIONS (2)
  - Death [Fatal]
  - Therapy non-responder [Unknown]
